FAERS Safety Report 5821640-9 (Version None)
Quarter: 2008Q3

REPORT INFORMATION
  Report Type: 
  Country: None (occurrence: None)
  Receive Date: 20080724
  Receipt Date: 20080718
  Transmission Date: 20090109
  Serious: Yes (Other)
  Sender: FDA-Public Use
  Company Number: JP-SANOFI-SYNTHELABO-F01200801187

PATIENT
  Sex: Male
  Weight: 62.9 kg

DRUGS (10)
  1. PYDOXAL [Concomitant]
     Dosage: UNK
     Dates: start: 20080222
  2. PL [Concomitant]
     Dosage: UNK
     Dates: start: 20071023, end: 20071025
  3. KYTRIL [Concomitant]
     Dosage: UNK
     Dates: start: 20080111, end: 20080321
  4. DEXART [Concomitant]
     Dosage: UNK
     Dates: start: 20071019, end: 20080321
  5. SEROTONE [Concomitant]
     Dosage: UNK
     Dates: start: 20070921, end: 20071228
  6. DECADRON [Concomitant]
     Dosage: UNK
     Dates: start: 20070921, end: 20071005
  7. AVASTIN [Suspect]
     Route: 041
     Dates: start: 20080321, end: 20080321
  8. LEUCOVORIN CALCIUM [Suspect]
     Route: 041
     Dates: start: 20080321, end: 20080321
  9. FLUOROURACIL [Suspect]
     Route: 042
     Dates: start: 20080321, end: 20080323
  10. ELPLAT [Suspect]
     Indication: COLON CANCER RECURRENT
     Route: 041
     Dates: start: 20080321, end: 20080321

REACTIONS (1)
  - PALMAR-PLANTAR ERYTHRODYSAESTHESIA SYNDROME [None]
